FAERS Safety Report 6766786-6 (Version None)
Quarter: 2010Q2

REPORT INFORMATION
  Report Type: 
  Country: None (occurrence: None)
  Receive Date: 20100611
  Receipt Date: 20100531
  Transmission Date: 20101027
  Serious: Yes (Hospitalization)
  Sender: FDA-Public Use
  Company Number: JP-ELI_LILLY_AND_COMPANY-JP201006000021

PATIENT
  Age: 83 Year
  Sex: Female

DRUGS (9)
  1. ZYPREXA [Suspect]
     Indication: DEMENTIA
     Dosage: 2.5 MG, DAILY (1/D)
     Route: 048
     Dates: start: 20100416
  2. WARFARIN [Concomitant]
     Indication: ATRIAL FIBRILLATION
     Route: 048
  3. BEZATOL [Concomitant]
     Route: 048
     Dates: start: 20100401
  4. DIOVAN [Concomitant]
     Indication: ATRIAL FIBRILLATION
     Route: 048
  5. ASPIRIN [Concomitant]
     Indication: ATRIAL FIBRILLATION
     Route: 048
  6. LANIRAPID [Concomitant]
     Route: 048
  7. LUPRAC [Concomitant]
     Route: 048
  8. PANTOSIN [Concomitant]
  9. MAGNESIUM OXIDE [Concomitant]
     Route: 048

REACTIONS (6)
  - ANAEMIA [None]
  - DEPRESSED LEVEL OF CONSCIOUSNESS [None]
  - DRUG INTERACTION [None]
  - INTERNATIONAL NORMALISED RATIO INCREASED [None]
  - MUSCLE HAEMORRHAGE [None]
  - OFF LABEL USE [None]
